FAERS Safety Report 5002548-8 (Version None)
Quarter: 2006Q2

REPORT INFORMATION
  Report Type: 
  Country: None (occurrence: None)
  Receive Date: 20060509
  Receipt Date: 20060428
  Transmission Date: 20061013
  Serious: Yes (Hospitalization, Other)
  Sender: FDA-Public Use
  Company Number: HQWYE885120APR06

PATIENT
  Age: 73 Year
  Sex: Female

DRUGS (12)
  1. AMIODARONE [Suspect]
     Indication: ARRHYTHMIA
     Dosage: 300 MG, INTRAVENOUS; 900 MG INTRAVENOUS
     Route: 042
     Dates: start: 20060323, end: 20060323
  2. AMIODARONE [Suspect]
     Indication: ARRHYTHMIA
     Dosage: 300 MG, INTRAVENOUS; 900 MG INTRAVENOUS
     Route: 042
     Dates: start: 20060324, end: 20060326
  3. AMIODARONE [Suspect]
     Indication: ARRHYTHMIA
     Dosage: 200 MG, 1X PER 1 DAY ORAL
     Route: 048
     Dates: start: 20060324
  4. ASPIRIN [Concomitant]
  5. CLOPIDOGREL   (CLOPIDOGREL) [Concomitant]
  6. SIMVASTATIN [Concomitant]
  7. NICORANDIL         (NICORANDIL) [Concomitant]
  8. SOTALOL HCL [Concomitant]
  9. LANSOPRAZOLE [Concomitant]
  10. TAMOXIFEN CITRATE [Concomitant]
  11. MEBEVERINE (MEBEVERINE) [Concomitant]
  12. NYSTATIN [Concomitant]

REACTIONS (1)
  - HYPONATRAEMIA [None]
